FAERS Safety Report 10109695 (Version 1)
Quarter: 2014Q2

REPORT INFORMATION
  Report Type: Spontaneous
  Country: FR (occurrence: FR)
  Receive Date: 20140425
  Receipt Date: 20140425
  Transmission Date: 20141212
  Serious: Yes (Hospitalization)
  Sender: FDA-Public Use
  Company Number: FR-009507513-1404FRA010043

PATIENT
  Age: 47 Year
  Sex: Female
  Weight: 50 kg

DRUGS (11)
  1. VIRAFERONPEG [Suspect]
     Indication: HEPATITIS C
     Dosage: 50 MICROGRAM, QW
     Route: 058
     Dates: start: 20130926, end: 20131014
  2. RIBAVIRIN [Suspect]
     Indication: HEPATITIS C
     Dosage: 1 DF, UNK
     Route: 048
     Dates: start: 20130926, end: 20131014
  3. ARANESP (DARBEPOETIN ALFA) [Concomitant]
     Indication: ANAEMIA
     Dosage: 20 MICROGRAM, QW
     Dates: start: 20130919, end: 201310
  4. ARANESP (DARBEPOETIN ALFA) [Concomitant]
     Dosage: 30 MICROGRAM, QW
     Dates: start: 201310
  5. ACUPAN [Concomitant]
     Indication: PAIN
     Dosage: 3 DF, QD
  6. TEGRETOL [Concomitant]
     Indication: EPILEPSY
     Dosage: 2 DF, QD
  7. LAMICTAL [Concomitant]
     Indication: EPILEPSY
     Dosage: 2 DF, QD
  8. URBANYL [Concomitant]
     Indication: EPILEPSY
     Dosage: 1 DF, QD
  9. URBANYL [Concomitant]
     Indication: EPILEPSY
     Dosage: 1 DF, QD
  10. EXFORGE [Concomitant]
     Indication: HYPERTENSION
     Dosage: UNK
  11. SPECIAFOLDINE [Concomitant]
     Indication: FOLATE DEFICIENCY
     Dosage: 1 DF, QD
     Dates: start: 20130919

REACTIONS (5)
  - Renal impairment [Recovered/Resolved]
  - Anaemia [Recovered/Resolved]
  - Lymphopenia [Recovering/Resolving]
  - Neutropenia [Recovering/Resolving]
  - Serum ferritin increased [Unknown]
